FAERS Safety Report 9316658 (Version 1)
Quarter: 2013Q2

REPORT INFORMATION
  Report Type: Spontaneous
  Country: US (occurrence: None)
  Receive Date: 20130528
  Receipt Date: 20130528
  Transmission Date: 20140414
  Serious: Yes (Other)
  Sender: FDA-Public Use
  Company Number: None

PATIENT
  Age: 31 Year
  Sex: Female
  Weight: 106.6 kg

DRUGS (3)
  1. INVEGA SUSTENNA [Suspect]
     Indication: BIPOLAR DISORDER
     Route: 030
     Dates: start: 20130404, end: 20130424
  2. INVEGA SUSTENNA [Suspect]
     Indication: SCHIZOPHRENIA
     Route: 030
     Dates: start: 20130404, end: 20130424
  3. INVEGA SUSTENNA [Suspect]
     Dates: start: 20130501, end: 20130501

REACTIONS (3)
  - Dysarthria [None]
  - Drooling [None]
  - Fatigue [None]
